FAERS Safety Report 4709638-5 (Version None)
Quarter: 2005Q3

REPORT INFORMATION
  Report Type: 
  Country: None (occurrence: None)
  Receive Date: 20050707
  Receipt Date: 20050628
  Transmission Date: 20060218
  Serious: Yes (Other)
  Sender: FDA-Public Use
  Company Number: S05-USA-03302-01

PATIENT
  Age: 61 Year
  Sex: Male

DRUGS (6)
  1. DILTIAZEM [Suspect]
     Indication: TACHYCARDIA
     Dosage: 240 MG QD PO
     Route: 048
     Dates: start: 20000101
  2. DILTIAZEM [Suspect]
     Indication: TACHYCARDIA
     Dosage: 300 MG QD PO
     Route: 048
     Dates: end: 20050610
  3. SIMVASTATIN [Concomitant]
  4. CLARITIN [Concomitant]
  5. MOTRIN [Concomitant]
  6. LISINOPRIL [Suspect]
     Dates: end: 20050101

REACTIONS (1)
  - LUPUS-LIKE SYNDROME [None]
